FAERS Safety Report 8588679-4 (Version None)
Quarter: 2012Q3

REPORT INFORMATION
  Report Type: 
  Country: None (occurrence: None)
  Receive Date: 20120813
  Receipt Date: 20120807
  Transmission Date: 20120928
  Serious: Yes (Hospitalization, Other)
  Sender: FDA-Public Use
  Company Number: PHHY2012BR069118

PATIENT
  Sex: Female
  Weight: 52.1 kg

DRUGS (9)
  1. EXELON [Suspect]
     Indication: MEMORY IMPAIRMENT
     Dosage: 3 MG, DAILY
     Route: 048
  2. EXELON [Suspect]
     Dosage: 6 MG, DAILY
     Route: 048
  3. EXELON [Suspect]
     Indication: MEMORY IMPAIRMENT
     Dosage: 4.6 MG, QD
     Route: 062
     Dates: start: 20101201
  4. EXELON [Suspect]
     Dosage: 9.5 MG, QD
     Route: 062
  5. EXELON [Suspect]
     Dosage: 3 MG, DAILY
     Route: 048
  6. CLORANA [Concomitant]
     Indication: HYPERTENSION
     Dosage: 0.5 DF (20MG) DAILY
     Route: 048
  7. EXELON [Suspect]
     Dosage: 2 DF (6MG), THE SAME DAY
     Route: 048
     Dates: start: 20120301
  8. ENALAPRIL MALEATE [Concomitant]
     Indication: HYPERTENSION
     Dosage: 0.5 DF (20MG) QD
     Route: 048
  9. ATENOLOL [Concomitant]
     Indication: CARDIAC DISORDER
     Dosage: 50 MG, DAILY
     Route: 048

REACTIONS (9)
  - MEMORY IMPAIRMENT [None]
  - HYPOAESTHESIA [None]
  - TACHYCARDIA [None]
  - NEUROTOXICITY [None]
  - SPEECH DISORDER [None]
  - DIZZINESS [None]
  - INCORRECT DOSE ADMINISTERED [None]
  - VOMITING [None]
  - DISORIENTATION [None]
